FAERS Safety Report 21758044 (Version 1)
Quarter: 2022Q4

REPORT INFORMATION
  Report Type: Spontaneous
  Country: US (occurrence: US)
  Receive Date: 20221221
  Receipt Date: 20221221
  Transmission Date: 20230113
  Serious: Yes (Congenital Anomaly)
  Sender: FDA-Public Use
  Company Number: US-CELLTRION INC.-2022US021217

PATIENT

DRUGS (2)
  1. TRUXIMA [Suspect]
     Active Substance: RITUXIMAB-ABBS
     Indication: Congenital anomaly
     Dosage: 780 MILLIGRAM EVERY 28 DAYS
     Dates: start: 20221114
  2. TRUXIMA [Suspect]
     Active Substance: RITUXIMAB-ABBS
     Dosage: 780 MILLIGRAM EVERY 28 DAYS
     Dates: start: 20221212

REACTIONS (2)
  - Congenital anomaly [Unknown]
  - Off label use [Unknown]
